FAERS Safety Report 5418154-7 (Version None)
Quarter: 2007Q3

REPORT INFORMATION
  Report Type: 
  Country: None (occurrence: None)
  Receive Date: 20070817
  Receipt Date: 20070808
  Transmission Date: 20080115
  Serious: Yes (Other)
  Sender: FDA-Public Use
  Company Number: US-ELI_LILLY_AND_COMPANY-US200705000443

PATIENT
  Age: 62 Year
  Sex: Male
  Weight: 82.993 kg

DRUGS (16)
  1. BYETTA [Suspect]
     Dosage: 5 UG, 2/D
     Route: 058
     Dates: start: 20060912, end: 20061004
  2. BYETTA [Suspect]
     Dosage: 10 UG, 2/D
     Route: 058
     Dates: start: 20061004, end: 20060101
  3. BYETTA [Suspect]
     Dosage: 5 UG, 2/D
     Route: 058
     Dates: start: 20070301
  4. AVANDIA [Concomitant]
  5. METFORMIN HCL [Concomitant]
  6. ATENOLOL [Concomitant]
     Dosage: 12.5 UNK, DAILY (1/D)
  7. ISOSORBIDE DINITRATE [Concomitant]
  8. ASPIRIN [Concomitant]
     Dosage: 81 UNK, DAILY (1/D)
  9. ALLOPURINOL [Concomitant]
     Dosage: 300 UNK, DAILY (1/D)
  10. AMARYL [Concomitant]
     Dosage: 8 UNK, DAILY (1/D)
  11. ANTIVERT [Concomitant]
     Dosage: 12.5 UNK, 3/D
  12. ACCUPRIL [Concomitant]
     Dosage: 40 UNK, 2/D
  13. AMLODIPINE BESYLATE [Concomitant]
     Dosage: 5 MG, DAILY (1/D)
  14. PRAVACHOL [Concomitant]
     Dosage: 40 UNK, DAILY (1/D)
  15. ELAVIL [Concomitant]
     Dosage: 25 UNK, DAILY (1/D)
  16. AVANDAMET [Concomitant]
     Dosage: UNK, 2/D

REACTIONS (8)
  - DECREASED APPETITE [None]
  - LOSS OF CONSCIOUSNESS [None]
  - NAUSEA [None]
  - PERIPHERAL VASCULAR DISORDER [None]
  - STOMACH DISCOMFORT [None]
  - VERTIGO [None]
  - WEIGHT DECREASED [None]
  - WEIGHT INCREASED [None]
